FAERS Safety Report 6896223-2 (Version None)
Quarter: 2010Q3

REPORT INFORMATION
  Report Type: 
  Country: None (occurrence: None)
  Receive Date: 20100802
  Receipt Date: 20100727
  Transmission Date: 20110219
  Serious: Yes (Death, Hospitalization)
  Sender: FDA-Public Use
  Company Number: A0872970A

PATIENT
  Age: 89 Year
  Sex: Female
  Weight: 64 kg

DRUGS (11)
  1. PROMACTA [Suspect]
     Indication: IDIOPATHIC THROMBOCYTOPENIC PURPURA
     Route: 048
  2. RITUXIMAB [Concomitant]
     Indication: IDIOPATHIC THROMBOCYTOPENIC PURPURA
     Route: 042
     Dates: start: 20050101
  3. ATENOLOL AND CHLORTHALIDONE [Concomitant]
     Dosage: .5TAB PER DAY
     Route: 048
  4. BENICAR [Concomitant]
     Dosage: 40MG PER DAY
     Route: 048
  5. CABERGOLINE [Concomitant]
     Dosage: 2MG TWO TIMES PER WEEK
     Route: 048
  6. COLACE [Concomitant]
     Dosage: 100MG PER DAY
     Route: 048
  7. NEURONTIN [Concomitant]
     Dosage: 100MG TWICE PER DAY
     Route: 048
  8. POTASSIUM CHLORIDE [Concomitant]
     Dosage: 40MEQ PER DAY
     Route: 048
  9. NIFEDIPINE [Concomitant]
     Route: 048
  10. TYLENOL W/ CODEINE NO. 3 [Concomitant]
     Indication: BACK PAIN
     Route: 048
  11. MEGACE [Concomitant]

REACTIONS (20)
  - ACUTE HEPATIC FAILURE [None]
  - ANXIETY [None]
  - ASTHENIA [None]
  - DEATH [None]
  - DYSPNOEA [None]
  - FATIGUE [None]
  - HEPATIC ENZYME INCREASED [None]
  - HODGKIN'S DISEASE [None]
  - HYPOGLYCAEMIA [None]
  - HYPONATRAEMIA [None]
  - HYPOPHAGIA [None]
  - HYPOTENSION [None]
  - IDIOPATHIC THROMBOCYTOPENIC PURPURA [None]
  - LETHARGY [None]
  - NAUSEA [None]
  - PLATELET COUNT DECREASED [None]
  - PNEUMONIA [None]
  - TACHYCARDIA [None]
  - URINARY TRACT INFECTION [None]
  - WHEEZING [None]
